FAERS Safety Report 7364588-3 (Version None)
Quarter: 2011Q1

REPORT INFORMATION
  Report Type: 
  Country: None (occurrence: None)
  Receive Date: 20110315
  Receipt Date: 20110315
  Transmission Date: 20110831
  Serious: Yes (Hospitalization)
  Sender: FDA-Public Use
  Company Number: None

PATIENT
  Sex: Male
  Weight: 84.37 kg

DRUGS (1)
  1. ERBITUX [Suspect]
     Dosage: 8.4 MG
     Dates: end: 20110307

REACTIONS (5)
  - INFUSION RELATED REACTION [None]
  - ACUTE RESPIRATORY DISTRESS SYNDROME [None]
  - FLUSHING [None]
  - FEELING HOT [None]
  - RESPIRATORY TRACT OEDEMA [None]
